FAERS Safety Report 9528455 (Version 1)
Quarter: 2013Q3

REPORT INFORMATION
  Report Type: Report from Study
  Country: US (occurrence: US)
  Receive Date: 20130917
  Receipt Date: 20130917
  Transmission Date: 20140515
  Serious: Yes (Hospitalization)
  Sender: FDA-Public Use
  Company Number: US-ABBVIE-13P-163-1145750-00

PATIENT
  Age: 76 Year
  Sex: Male
  Weight: 65.83 kg

DRUGS (14)
  1. HUMIRA [Suspect]
     Indication: ANKYLOSING SPONDYLITIS
     Dates: start: 2010, end: 201209
  2. LISINOPRIL [Concomitant]
     Indication: BLOOD PRESSURE
  3. ASPIRIN [Concomitant]
     Indication: CARDIAC DISORDER
  4. PANTOPRAZOLE [Concomitant]
     Indication: GASTROOESOPHAGEAL REFLUX DISEASE
  5. CARDIVILOL [Concomitant]
     Indication: BLOOD PRESSURE
  6. PREDNISONE [Concomitant]
     Indication: ANKYLOSING SPONDYLITIS
  7. SUFLASALAZINE [Concomitant]
     Indication: ANKYLOSING SPONDYLITIS
  8. CYCLOBENZAPRINE [Concomitant]
     Indication: ANKYLOSING SPONDYLITIS
  9. CRESTOR [Concomitant]
     Indication: BLOOD CHOLESTEROL
  10. TEMAZAPAM [Concomitant]
     Indication: INSOMNIA
  11. VITAMIN D NOS [Concomitant]
     Indication: VITAMIN SUPPLEMENTATION
  12. VITAMIN B12 [Concomitant]
     Indication: VITAMIN SUPPLEMENTATION
  13. CENTRUM SILVER [Concomitant]
     Indication: VITAMIN SUPPLEMENTATION
  14. HYDROCODONE [Concomitant]
     Indication: NEUROPATHY PERIPHERAL

REACTIONS (7)
  - Stent malfunction [Recovered/Resolved]
  - Hypoaesthesia [Recovered/Resolved]
  - Pneumonia [Recovered/Resolved]
  - Nasopharyngitis [Recovered/Resolved]
  - Myocardial infarction [Recovered/Resolved]
  - Chest pain [Recovered/Resolved]
  - Chest pain [Recovered/Resolved]
